FAERS Safety Report 9219221 (Version 1)
Quarter: 2013Q1

REPORT INFORMATION
  Report Type: Spontaneous
  Country: US (occurrence: US)
  Receive Date: 20120830
  Receipt Date: 20120830
  Transmission Date: 20140127
  Serious: Yes (Other)
  Sender: FDA-Public Use
  Company Number: PHHY2011US65239

PATIENT
  Sex: Female

DRUGS (1)
  1. SANDOSTATIN LAR DEPOT [Suspect]

REACTIONS (4)
  - Cholelithiasis [None]
  - Blood chromogranin A increased [None]
  - Stress [None]
  - Rash maculo-papular [None]
